FAERS Safety Report 18109369 (Version 2)
Quarter: 2021Q2

REPORT INFORMATION
  Report Type: Spontaneous
  Country: US (occurrence: US)
  Receive Date: 20200804
  Receipt Date: 20210629
  Transmission Date: 20210717
  Serious: No
  Sender: FDA-Public Use
  Company Number: US-TEVA-2020-US-1809285

PATIENT
  Sex: Male

DRUGS (2)
  1. FLUTICASONE PROPIONATE / SALMETEROL XINOFOATE TEVA [Suspect]
     Active Substance: FLUTICASONE PROPIONATE\SALMETEROL XINAFOATE
     Dosage: 113MCG/14 MCG
     Route: 055
  2. FLUTICASONE PROPIONATE / SALMETEROL XINOFOATE TEVA [Suspect]
     Active Substance: FLUTICASONE PROPIONATE\SALMETEROL XINAFOATE
     Indication: ASTHMA
     Dosage: 55 MCG/14 MCG
     Route: 055
     Dates: start: 202005

REACTIONS (4)
  - Wheezing [Recovered/Resolved]
  - Drug ineffective [Recovered/Resolved]
  - Dyspnoea [Recovered/Resolved]
  - Device defective [Unknown]

NARRATIVE: CASE EVENT DATE: 2020
